FAERS Safety Report 19857463 (Version 1)
Quarter: 2021Q3

REPORT INFORMATION
  Report Type: Other
  Country: IN (occurrence: JP)
  Receive Date: 20210920
  Receipt Date: 20210920
  Transmission Date: 20211014
  Serious: Yes (Hospitalization, Other)
  Sender: FDA-Public Use
  Company Number: JP-BRECKENRIDGE PHARMACEUTICAL, INC.-2118577

PATIENT
  Age: 79 Year
  Sex: Male

DRUGS (1)
  1. IMATINIB. [Suspect]
     Active Substance: IMATINIB MESYLATE

REACTIONS (1)
  - Proteinuria [Unknown]
